FAERS Safety Report 5455724-4 (Version None)
Quarter: 2007Q3

REPORT INFORMATION
  Report Type: 
  Country: None (occurrence: None)
  Receive Date: 20070913
  Receipt Date: 20070913
  Transmission Date: 20080115
  Serious: Yes (Life-Threatening, Other)
  Sender: FDA-Public Use
  Company Number: None

PATIENT
  Sex: Male
  Weight: 131.5431 kg

DRUGS (2)
  1. TICE BCG [Suspect]
     Indication: BLADDER CANCER
     Dosage: WEEKLY INTRAVESICAL
     Route: 043
     Dates: start: 20070705, end: 20070705
  2. TICE BCG [Suspect]
     Indication: BLADDER CANCER
     Dosage: WEEKLY INTRAVESICAL
     Route: 043
     Dates: start: 20070712, end: 20070712

REACTIONS (2)
  - DIARRHOEA [None]
  - HEPATITIS C [None]
